FAERS Safety Report 17792209 (Version 1)
Quarter: 2020Q2

REPORT INFORMATION
  Report Type: Spontaneous
  Country: FR (occurrence: FR)
  Receive Date: 20200515
  Receipt Date: 20200515
  Transmission Date: 20200714
  Serious: Yes (Life-Threatening, Hospitalization)
  Sender: FDA-Public Use
  Company Number: FR-ROCHE-2598884

PATIENT
  Age: 2 Year
  Sex: Female
  Weight: 12.5 kg

DRUGS (7)
  1. ROVALCYTE [Suspect]
     Active Substance: VALGANCICLOVIR HYDROCHLORIDE
     Indication: PROPHYLAXIS
     Route: 048
     Dates: start: 20190709, end: 20190814
  2. IMIPENEM CILASTATINE MYLAN [Interacting]
     Active Substance: IMIPENEM
     Indication: ACUTE RESPIRATORY DISTRESS SYNDROME
     Route: 041
     Dates: start: 20190730, end: 20190811
  3. CIDOFOVIR. [Interacting]
     Active Substance: CIDOFOVIR
     Indication: CYTOMEGALOVIRUS INFECTION
     Route: 041
     Dates: start: 20190803, end: 20190816
  4. IMUREL [AZATHIOPRINE] [Interacting]
     Active Substance: AZATHIOPRINE
     Indication: LUNG TRANSPLANT
     Route: 048
     Dates: start: 20190703, end: 20190811
  5. NEORAL [Interacting]
     Active Substance: CYCLOSPORINE
     Indication: LUNG TRANSPLANT
     Route: 048
     Dates: start: 20190703
  6. ZOVIRAX [Interacting]
     Active Substance: ACYCLOVIR
     Indication: PROPHYLAXIS
     Route: 048
     Dates: start: 201907
  7. LASILIX [FUROSEMIDE] [Interacting]
     Active Substance: FUROSEMIDE
     Indication: URINE OUTPUT DECREASED
     Route: 042
     Dates: start: 20190720, end: 20190813

REACTIONS (2)
  - Acute kidney injury [Recovering/Resolving]
  - Hyperlactacidaemia [Recovered/Resolved]

NARRATIVE: CASE EVENT DATE: 20190811
